FAERS Safety Report 5968835-1 (Version None)
Quarter: 2008Q4

REPORT INFORMATION
  Report Type: 
  Country: None (occurrence: None)
  Receive Date: 20081125
  Receipt Date: 20081125
  Transmission Date: 20090506
  Serious: Yes (Other)
  Sender: FDA-Public Use
  Company Number: None

PATIENT
  Age: 31 Year
  Sex: Female

DRUGS (2)
  1. CHANTIX [Suspect]
     Indication: SMOKING CESSATION THERAPY
     Dosage: 0.5 MG  BID PO
     Route: 048
  2. CHANTIX [Suspect]
     Dosage: 1 MG BID
     Route: 048

REACTIONS (1)
  - FEELING ABNORMAL [None]
